FAERS Safety Report 22372904 (Version 2)
Quarter: 2023Q2

REPORT INFORMATION
  Report Type: Report from Study
  Country: US (occurrence: US)
  Receive Date: 20230526
  Receipt Date: 20230612
  Transmission Date: 20230722
  Serious: Yes (Other)
  Sender: FDA-Public Use
  Company Number: US-INSMED, INC.-2023-00451-US

PATIENT
  Sex: Female

DRUGS (5)
  1. ARIKAYCE [Suspect]
     Active Substance: AMIKACIN
     Indication: Mycobacterial infection
     Dosage: 590 MILLIGRAM, QD
     Route: 055
     Dates: start: 20221219, end: 2023
  2. RIFAMPIN [Concomitant]
     Active Substance: RIFAMPIN
     Indication: Mycobacterial infection
     Route: 065
  3. AZITHROMYCIN [Concomitant]
     Active Substance: AZITHROMYCIN
     Indication: Mycobacterial infection
     Route: 065
  4. ETHAMBUTOL [Concomitant]
     Active Substance: ETHAMBUTOL HYDROCHLORIDE
     Indication: Mycobacterial infection
     Route: 065
  5. ALENDRONATE [Concomitant]
     Active Substance: ALENDRONATE SODIUM
     Indication: Product used for unknown indication
     Route: 065

REACTIONS (5)
  - Autonomic neuropathy [Unknown]
  - Adverse drug reaction [Unknown]
  - Product dose omission issue [Unknown]
  - Intentional dose omission [Unknown]
  - Device use issue [Unknown]

NARRATIVE: CASE EVENT DATE: 20230101
